FAERS Safety Report 8095352-8 (Version None)
Quarter: 2012Q1

REPORT INFORMATION
  Report Type: 
  Country: None (occurrence: None)
  Receive Date: 20120131
  Receipt Date: 20120123
  Transmission Date: 20120608
  Serious: Yes (Other)
  Sender: FDA-Public Use
  Company Number: US-BAYER-201023214NA

PATIENT
  Age: 34 Year
  Sex: Female
  Weight: 47.619 kg

DRUGS (8)
  1. WARFARIN SODIUM [Concomitant]
     Dosage: 2 MG, UNK
  2. YASMIN [Suspect]
     Route: 048
     Dates: start: 20070801
  3. DROSPIRENONE AND ETHINYL ESTRADIOL [Suspect]
     Route: 048
     Dates: start: 20070801
  4. HEPSERA [Concomitant]
     Dosage: UNK
     Dates: start: 20070101
  5. YAZ [Suspect]
     Indication: ACNE
     Dosage: UNK UNK, UNK
     Route: 048
     Dates: start: 20070801, end: 20090401
  6. VITAMIN D [Concomitant]
     Dosage: 50000 IU, OW
     Route: 048
  7. TRIAMTERENE AND HYDROCHLOROTHIAZIDE [Concomitant]
     Dosage: UNK UNK, OM
     Route: 048
  8. LOVENOX [Concomitant]

REACTIONS (2)
  - PULMONARY EMBOLISM [None]
  - ANXIETY [None]
